FAERS Safety Report 7207547-3 (Version None)
Quarter: 2010Q4

REPORT INFORMATION
  Report Type: 
  Country: None (occurrence: None)
  Receive Date: 20101217
  Receipt Date: 20101203
  Transmission Date: 20110411
  Serious: Yes (Hospitalization)
  Sender: FDA-Public Use
  Company Number: 1000017713

PATIENT
  Age: 22 Year
  Sex: Female

DRUGS (3)
  1. ESCITALOPRAM [Suspect]
     Dosage: ORAL
     Route: 048
     Dates: start: 20101119, end: 20101119
  2. SERESTA (OXAZEPAM) [Suspect]
     Dosage: ORAL
     Route: 048
     Dates: start: 20101119, end: 20101119
  3. ABILIFY [Suspect]
     Dosage: ORAL
     Route: 048
     Dates: start: 20101119, end: 20101119

REACTIONS (2)
  - POISONING DELIBERATE [None]
  - SOMNOLENCE [None]
